FAERS Safety Report 16655876 (Version 1)
Quarter: 2019Q3

REPORT INFORMATION
  Report Type: Spontaneous
  Country: DE (occurrence: DE)
  Receive Date: 20190801
  Receipt Date: 20190801
  Transmission Date: 20191004
  Serious: Yes (Hospitalization)
  Sender: FDA-Public Use
  Company Number: PHHY2019DE175829

PATIENT
  Age: 77 Year
  Sex: Male
  Weight: 71 kg

DRUGS (2)
  1. VARGATEF [Suspect]
     Active Substance: NINTEDANIB
     Indication: LUNG ADENOCARCINOMA
     Dosage: 400 MG, BID (200 MD BID)
     Route: 048
     Dates: start: 20151215
  2. DOCETAXEL. [Suspect]
     Active Substance: DOCETAXEL
     Indication: LUNG ADENOCARCINOMA
     Dosage: 75 MG, QD (DAILY DOSE: 75 MG / M2 BSA, FORMULATION: LIQUID)
     Route: 042
     Dates: start: 20151215

REACTIONS (3)
  - Diarrhoea [Recovered/Resolved]
  - White blood cell count decreased [Recovered/Resolved]
  - Penetrating aortic ulcer [Recovered/Resolved]

NARRATIVE: CASE EVENT DATE: 20151229
